FAERS Safety Report 8798294 (Version 1)
Quarter: 2012Q4

REPORT INFORMATION
  Report Type: Spontaneous
  Country: US (occurrence: None)
  Receive Date: 20120913
  Receipt Date: 20120913
  Transmission Date: 20130627
  Serious: Yes (Other)
  Sender: FDA-Public Use
  Company Number: JPI-P-024961

PATIENT
  Age: 39 Year
  Sex: Female
  Weight: 104.33 kg

DRUGS (7)
  1. XYREM [Suspect]
     Indication: INSOMNIA
     Route: 048
     Dates: start: 201105
  2. XYREM [Suspect]
     Indication: INSOMNIA
     Route: 048
  3. XYREM [Suspect]
     Indication: INSOMNIA
  4. FENOFIBRATE [Concomitant]
  5. CONJUGATED ESTROGENS [Concomitant]
  6. FLUOXETINE HYDROCHLORIDE [Concomitant]
  7. AMPHETAMINE, DEXTROAMPHETAMINE MIXED SALTS [Concomitant]

REACTIONS (1)
  - Intervertebral disc protrusion [None]
